FAERS Safety Report 10240641 (Version 1)
Quarter: 2014Q2

REPORT INFORMATION
  Report Type: Spontaneous
  Country: US (occurrence: US)
  Receive Date: 20140617
  Receipt Date: 20140617
  Transmission Date: 20141212
  Serious: Yes (Hospitalization)
  Sender: FDA-Public Use
  Company Number: US-JNJFOC-20140606024

PATIENT
  Age: 74 Year
  Sex: Male

DRUGS (8)
  1. XARELTO [Suspect]
     Indication: CEREBROVASCULAR ACCIDENT PROPHYLAXIS
     Route: 048
     Dates: start: 2012, end: 201404
  2. XARELTO [Suspect]
     Indication: CEREBROVASCULAR ACCIDENT PROPHYLAXIS
     Route: 048
     Dates: start: 201404
  3. XARELTO [Suspect]
     Indication: ATRIAL FIBRILLATION
     Route: 048
     Dates: start: 201404
  4. XARELTO [Suspect]
     Indication: ATRIAL FIBRILLATION
     Route: 048
     Dates: start: 2012, end: 201404
  5. METOPROLOL [Suspect]
     Indication: HYPERTENSION
     Route: 048
     Dates: start: 2014, end: 201404
  6. DILTIAZEM [Concomitant]
     Indication: ATRIAL FIBRILLATION
     Route: 048
  7. LOSARTAN [Concomitant]
     Route: 048
  8. GARLIC [Concomitant]
     Indication: BLOOD PRESSURE
     Route: 048

REACTIONS (3)
  - Prostatomegaly [Recovered/Resolved]
  - Dysuria [Not Recovered/Not Resolved]
  - Urinary tract infection [Recovered/Resolved]
